FAERS Safety Report 6725742-4 (Version None)
Quarter: 2010Q2

REPORT INFORMATION
  Report Type: 
  Country: None (occurrence: None)
  Receive Date: 20100514
  Receipt Date: 20100506
  Transmission Date: 20101027
  Serious: Yes (Other)
  Sender: FDA-Public Use
  Company Number: US-PFIZER INC-2010058126

PATIENT
  Sex: Female
  Weight: 93 kg

DRUGS (14)
  1. NORVASC [Suspect]
     Indication: ANGINA PECTORIS
     Dosage: 10 MG, 1X/DAY
     Route: 048
     Dates: start: 20070101
  2. NORVASC [Suspect]
     Indication: MUSCLE SPASMS
  3. NORVASC [Suspect]
     Indication: MYOCARDIAL INFARCTION
  4. WARFARIN [Suspect]
     Dosage: UNK
  5. PREDNISONE [Concomitant]
     Dosage: 10 MG, UNK
  6. PROTONIX [Concomitant]
     Dosage: UNK
  7. ELAVIL [Concomitant]
     Dosage: UNK
  8. ZETIA [Concomitant]
     Dosage: UNK
  9. DIAZEPAM [Concomitant]
     Dosage: UNK
  10. BENADRYL [Concomitant]
     Dosage: UNK
  11. MERIDIA [Concomitant]
     Dosage: UNK
  12. ORENCIA [Concomitant]
     Dosage: UNK
  13. METHOTREXATE [Concomitant]
     Dosage: UNK
  14. FOLIC ACID [Concomitant]
     Dosage: UNK

REACTIONS (13)
  - ALANINE AMINOTRANSFERASE INCREASED [None]
  - ASPARTATE AMINOTRANSFERASE INCREASED [None]
  - ATAXIA [None]
  - BLOOD ALKALINE PHOSPHATASE INCREASED [None]
  - BLOOD TRIGLYCERIDES INCREASED [None]
  - BRAIN INJURY [None]
  - FALL [None]
  - FIBROMYALGIA [None]
  - HIGH DENSITY LIPOPROTEIN INCREASED [None]
  - LOSS OF CONSCIOUSNESS [None]
  - PULMONARY EMBOLISM [None]
  - RHEUMATOID ARTHRITIS [None]
  - TOTAL CHOLESTEROL/HDL RATIO INCREASED [None]
